FAERS Safety Report 17579693 (Version 3)
Quarter: 2023Q2

REPORT INFORMATION
  Report Type: Spontaneous
  Country: US (occurrence: US)
  Receive Date: 20200325
  Receipt Date: 20230502
  Transmission Date: 20230722
  Serious: Yes (Other)
  Sender: FDA-Public Use
  Company Number: US-GILEAD-2020-0455988

PATIENT
  Age: 49 Year
  Sex: Female
  Weight: 95.238 kg

DRUGS (19)
  1. TRUVADA [Suspect]
     Active Substance: EMTRICITABINE\TENOFOVIR DISOPROXIL FUMARATE
     Indication: HIV infection
     Dosage: UNK
     Route: 048
     Dates: start: 2011, end: 201502
  2. GENVOYA [Concomitant]
     Active Substance: COBICISTAT\ELVITEGRAVIR\EMTRICITABINE\TENOFOVIR ALAFENAMIDE FUMARATE
     Indication: HIV infection
     Dosage: UNK
     Route: 065
     Dates: start: 20190805
  3. GENVOYA [Concomitant]
     Active Substance: COBICISTAT\ELVITEGRAVIR\EMTRICITABINE\TENOFOVIR ALAFENAMIDE FUMARATE
     Dosage: UNK
     Dates: start: 20200317
  4. GABAPENTIN [Concomitant]
     Active Substance: GABAPENTIN
     Indication: Pain
     Dosage: UNK
     Route: 065
  5. GABAPENTIN [Concomitant]
     Active Substance: GABAPENTIN
     Indication: Exostosis
  6. ESOMEPRAZOLE [Concomitant]
     Active Substance: ESOMEPRAZOLE
     Indication: Gastrooesophageal reflux disease
     Dosage: UNK
     Route: 065
     Dates: start: 20200317
  7. FLUTICASONE [Concomitant]
     Active Substance: FLUTICASONE
     Indication: Nasal congestion
     Dosage: UNK
     Route: 065
     Dates: start: 20200317
  8. ALBUTEROL SULFATE [Concomitant]
     Active Substance: ALBUTEROL SULFATE
     Indication: Asthma
     Dosage: UNK
     Route: 065
     Dates: start: 20200317
  9. VITAMIN D NOS [Concomitant]
     Active Substance: VITAMIN D NOS
     Indication: Bone disorder
     Dosage: UNK
     Route: 065
  10. ATRIPLA [Suspect]
     Active Substance: EFAVIRENZ\EMTRICITABINE\TENOFOVIR DISOPROXIL FUMARATE
     Indication: HIV infection
     Dosage: UNK
     Route: 048
  11. ZITHROMAX [Concomitant]
     Active Substance: AZITHROMYCIN DIHYDRATE
     Indication: Bacterial infection
     Dosage: UNK
     Route: 065
     Dates: start: 20191129
  12. TESSALON [Concomitant]
     Active Substance: BENZONATATE
     Indication: Bronchitis
     Dosage: UNK
     Route: 065
     Dates: start: 20191129
  13. CETIRIZINE HYDROCHLORIDE [Concomitant]
     Active Substance: CETIRIZINE HYDROCHLORIDE
     Indication: Hypersensitivity
     Dosage: UNK
     Route: 065
     Dates: start: 20191109
  14. VITAMIN D2 [Concomitant]
     Active Substance: ERGOCALCIFEROL
     Indication: Hypovitaminosis
     Dosage: UNK
     Route: 065
     Dates: start: 20200317
  15. ALLEGRA [Concomitant]
     Active Substance: FEXOFENADINE HYDROCHLORIDE
     Indication: Hypersensitivity
     Dosage: UNK
     Route: 065
     Dates: start: 20191105
  16. HYDROXYZINE [Concomitant]
     Active Substance: HYDROXYZINE HYDROCHLORIDE
     Indication: Hypersensitivity
     Dosage: UNK
     Route: 065
     Dates: start: 20200403
  17. LIDOCAINE [Concomitant]
     Active Substance: LIDOCAINE
     Indication: Pain
     Dosage: UNK
     Route: 062
     Dates: start: 20190805, end: 20200803
  18. DELTASONE [Concomitant]
     Active Substance: PREDNISONE
     Indication: Steroid therapy
     Dosage: UNK
     Route: 065
     Dates: start: 20191129
  19. EFFEXOR [Concomitant]
     Active Substance: VENLAFAXINE HYDROCHLORIDE
     Indication: Depression
     Dosage: UNK
     Route: 065
     Dates: start: 20191105, end: 20200317

REACTIONS (9)
  - Chronic kidney disease [Not Recovered/Not Resolved]
  - Vitamin D deficiency [Not Recovered/Not Resolved]
  - Osteopenia [Not Recovered/Not Resolved]
  - Depression [Not Recovered/Not Resolved]
  - Emotional distress [Not Recovered/Not Resolved]
  - Anhedonia [Not Recovered/Not Resolved]
  - Economic problem [Unknown]
  - Anxiety [Not Recovered/Not Resolved]
  - Pain [Not Recovered/Not Resolved]

NARRATIVE: CASE EVENT DATE: 20150205
